FAERS Safety Report 5011681-6 (Version None)
Quarter: 2006Q2

REPORT INFORMATION
  Report Type: 
  Country: None (occurrence: None)
  Receive Date: 20060526
  Receipt Date: 20060523
  Transmission Date: 20061013
  Serious: Yes (Hospitalization)
  Sender: FDA-Public Use
  Company Number: IE-BRISTOL-MYERS SQUIBB COMPANY-13387196

PATIENT
  Age: 79 Year
  Sex: Male

DRUGS (11)
  1. COUMADIN [Suspect]
  2. ARAVA [Suspect]
     Dosage: TABLETS
  3. ASPIRIN [Suspect]
     Dates: start: 20060204, end: 20060207
  4. DELTACORTRIL [Suspect]
  5. ENBREL [Suspect]
     Indication: RHEUMATOID ARTHRITIS
     Route: 058
     Dates: start: 20051206, end: 20060128
  6. NEXIUM [Concomitant]
  7. CALCICHEW D3 [Concomitant]
  8. FOSAMAX [Concomitant]
  9. FUROSEMIDE [Concomitant]
  10. DILZEM [Concomitant]
  11. DIFENE [Concomitant]

REACTIONS (3)
  - CARDIAC FAILURE [None]
  - CEREBROVASCULAR DISORDER [None]
  - PNEUMONIA [None]
